FAERS Safety Report 11989320 (Version 1)
Quarter: 2016Q1

REPORT INFORMATION
  Report Type: Report from Study
  Country: US (occurrence: US)
  Receive Date: 20160202
  Receipt Date: 20160202
  Transmission Date: 20160526
  Serious: Yes (Other)
  Sender: FDA-Public Use
  Company Number: US-GILEAD-2016-0195168

PATIENT
  Age: 71 Year
  Sex: Female

DRUGS (1)
  1. LEDIPASVIR/SOFOSBUVIR [Suspect]
     Active Substance: LEDIPASVIR\SOFOSBUVIR
     Indication: CHRONIC HEPATITIS C
     Dosage: 1 DF, UNK
     Route: 048
     Dates: start: 20150907

REACTIONS (7)
  - Staring [Unknown]
  - Unresponsive to stimuli [Unknown]
  - Urinary tract infection [Unknown]
  - Confusional state [Unknown]
  - Ammonia increased [Unknown]
  - Mental status changes [Unknown]
  - Feeling abnormal [Unknown]
